FAERS Safety Report 17303447 (Version 2)
Quarter: 2020Q1

REPORT INFORMATION
  Report Type: Spontaneous
  Country: US (occurrence: US)
  Receive Date: 20200122
  Receipt Date: 20200221
  Transmission Date: 20200409
  Serious: Yes (Death, Other)
  Sender: FDA-Public Use
  Company Number: US-INCYTE CORPORATION-2020IN000594

PATIENT

DRUGS (1)
  1. JAKAFI [Suspect]
     Active Substance: RUXOLITINIB
     Indication: MYELODYSPLASTIC SYNDROME
     Dosage: 10 MILLIGRAM, QD
     Route: 048
     Dates: start: 20180929

REACTIONS (4)
  - Bile duct stone [Fatal]
  - Biliary sepsis [Fatal]
  - Off label use [Unknown]
  - Bile duct obstruction [Fatal]

NARRATIVE: CASE EVENT DATE: 20180929
